FAERS Safety Report 9095690 (Version 1)
Quarter: 2013Q1

REPORT INFORMATION
  Report Type: Spontaneous
  Country: IT (occurrence: IT)
  Receive Date: 20130220
  Receipt Date: 20130220
  Transmission Date: 20140127
  Serious: Yes (Other)
  Sender: FDA-Public Use
  Company Number: IT-ACCORD-016500

PATIENT
  Age: 64 Year
  Sex: Male

DRUGS (6)
  1. ONDASETRON [Concomitant]
     Indication: PROPHYLAXIS OF NAUSEA AND VOMITING
     Route: 042
  2. RANIDIL [Concomitant]
     Dosage: (A. MENARINI INDUSTRIE FARMACEUTICHE?RIUNITE S.R.L.)
  3. LASIX [Concomitant]
  4. GEMCITABINE [Suspect]
     Indication: BLADDER ADENOCARCINOMA STAGE UNSPECIFIED
     Route: 042
     Dates: start: 20120828, end: 20121109
  5. CISPLATIN [Suspect]
     Indication: BLADDER ADENOCARCINOMA STAGE UNSPECIFIED
     Dosage: SOLUTION FOR INTRAVENOUS INFUSION
     Route: 042
     Dates: start: 20120828, end: 20121109
  6. SOLDESAM [Concomitant]

REACTIONS (7)
  - Abdominal pain [Recovering/Resolving]
  - Constipation [Recovering/Resolving]
  - Fatigue [Recovering/Resolving]
  - Headache [Recovering/Resolving]
  - Nausea [Recovering/Resolving]
  - Vomiting [Recovering/Resolving]
  - Off label use [Unknown]
